FAERS Safety Report 4284861-5 (Version None)
Quarter: 2004Q1

REPORT INFORMATION
  Report Type: 
  Country: None (occurrence: None)
  Receive Date: 20040204
  Receipt Date: 20040122
  Transmission Date: 20041129
  Serious: Yes (Hospitalization)
  Sender: FDA-Public Use
  Company Number: FR-BRISTOL-MYERS SQUIBB COMPANY-12485298

PATIENT
  Age: 73 Year
  Sex: Female

DRUGS (4)
  1. AMIKACIN [Suspect]
     Route: 042
     Dates: start: 20031117, end: 20031121
  2. SKENAN PROL RELEASE GRAN CAPS [Suspect]
     Route: 048
     Dates: start: 20030901, end: 20031122
  3. PERFALGAN IV [Suspect]
     Route: 042
     Dates: start: 20031117
  4. CEFTRIAXONE [Suspect]
     Dates: start: 20031117, end: 20031126

REACTIONS (5)
  - BRONCHOSPASM [None]
  - DEHYDRATION [None]
  - RENAL FAILURE ACUTE [None]
  - RESPIRATORY FAILURE [None]
  - URINARY RETENTION [None]
